FAERS Safety Report 6125738-X (Version None)
Quarter: 2009Q1

REPORT INFORMATION
  Report Type: 
  Country: None (occurrence: None)
  Receive Date: 20090319
  Receipt Date: 20090319
  Transmission Date: 20090719
  Serious: Yes (Other)
  Sender: FDA-Public Use
  Company Number: None

PATIENT
  Age: 45 Year
  Sex: Male
  Weight: 77.1115 kg

DRUGS (1)
  1. DOXYCYCLINE [Suspect]
     Indication: SEXUALLY TRANSMITTED DISEASE
     Dosage: 2 DOSES PER DAY PO
     Route: 048
     Dates: start: 20090210, end: 20090220

REACTIONS (10)
  - ANOREXIA [None]
  - ARTHRALGIA [None]
  - DEPRESSION [None]
  - DRY THROAT [None]
  - FEELING OF DESPAIR [None]
  - HEADACHE [None]
  - MYALGIA [None]
  - NAUSEA [None]
  - OROPHARYNGEAL PAIN [None]
  - SKIN BURNING SENSATION [None]
